FAERS Safety Report 4519956-1 (Version None)
Quarter: 2004Q4

REPORT INFORMATION
  Report Type: 
  Country: None (occurrence: None)
  Receive Date: 20041123
  Receipt Date: 20041123
  Transmission Date: 20050328
  Serious: Yes (Other)
  Sender: FDA-Public Use
  Company Number: None

PATIENT
  Age: 86 Year
  Sex: Male
  Weight: 100.1 kg

DRUGS (13)
  1. DILANTIN [Suspect]
  2. PREDNISONE [Concomitant]
  3. FUROSEMIDE [Concomitant]
  4. CARVEDILOL [Concomitant]
  5. TRIAMCINOLONE [Concomitant]
  6. POTASSIUM CHLORIDE [Concomitant]
  7. ACETAMINOPHEN [Concomitant]
  8. ALOH/MGOH/SIMTH XTRA STRENGTH LIQ SUSP [Concomitant]
  9. WARFARIN SODIUM [Concomitant]
  10. FINASTERIDE [Concomitant]
  11. ALBUTEROL/IPRATROPIUM MDI [Concomitant]
  12. NITROGLYCERIN [Concomitant]
  13. DONEPEZIL HCL [Concomitant]

REACTIONS (1)
  - RASH [None]
